FAERS Safety Report 10270173 (Version 3)
Quarter: 2015Q2

REPORT INFORMATION
  Report Type: Spontaneous
  Country: US (occurrence: US)
  Receive Date: 20140701
  Receipt Date: 20150406
  Transmission Date: 20150821
  Serious: Yes (Life-Threatening, Hospitalization, Other)
  Sender: FDA-Public Use
  Company Number: US-BAYER-2014-094402

PATIENT
  Age: 62 Year
  Sex: Male
  Weight: 82.6 kg

DRUGS (10)
  1. ALEVE [Suspect]
     Active Substance: NAPROXEN SODIUM
     Indication: ARTHRALGIA
     Dosage: 220MG EVERY 8 HOURS AS NEEDED FOR PAIN
     Route: 048
     Dates: end: 20140304
  2. PRILOSEC [Concomitant]
     Active Substance: OMEPRAZOLE MAGNESIUM
     Dosage: 20 MG, QD
  3. ALEVE [Suspect]
     Active Substance: NAPROXEN SODIUM
     Indication: MUSCULOSKELETAL PAIN
     Dosage: 220MG EVERY 8 HOURS AS NEEDED FOR PAIN
     Route: 048
     Dates: end: 20140304
  4. ALEVE [Suspect]
     Active Substance: NAPROXEN SODIUM
     Indication: ARTHRALGIA
  5. LISINOPRIL AND HYDROCHLOROTHIAZIDE [Concomitant]
     Active Substance: HYDROCHLOROTHIAZIDE\LISINOPRIL
     Dosage: 1 DF, QD
     Route: 048
  6. ALEVE [Suspect]
     Active Substance: NAPROXEN SODIUM
     Indication: PAIN IN EXTREMITY
  7. DIPHENHYDRAMINE [Concomitant]
     Active Substance: DIPHENHYDRAMINE
     Dosage: 50 MG, HS
  8. ALEVE [Suspect]
     Active Substance: NAPROXEN SODIUM
     Indication: MUSCULOSKELETAL PAIN
     Dosage: 220MG EVERY 8 HOURS AS NEEDED FOR PAIN
     Route: 048
     Dates: end: 20140304
  9. ALEVE [Suspect]
     Active Substance: NAPROXEN SODIUM
     Indication: PAIN IN EXTREMITY
  10. FUROSEMIDE. [Concomitant]
     Active Substance: FUROSEMIDE
     Indication: SWELLING
     Dosage: 20 MG, PRN
     Route: 048

REACTIONS (16)
  - Urinary retention [None]
  - Gout [Not Recovered/Not Resolved]
  - Incorrect drug administration duration [Unknown]
  - Peripheral swelling [None]
  - Dyspnoea exertional [None]
  - Orthopnoea [None]
  - Back pain [None]
  - Asphyxia [Recovered/Resolved]
  - Renal failure [Not Recovered/Not Resolved]
  - Hydronephrosis [None]
  - Lung disorder [None]
  - Dyspnoea [Recovered/Resolved]
  - Benign prostatic hyperplasia [None]
  - Dehydration [Recovered/Resolved]
  - Depression [Unknown]
  - Fatigue [None]

NARRATIVE: CASE EVENT DATE: 201401
